FAERS Safety Report 9554437 (Version 2)
Quarter: 2013Q4

REPORT INFORMATION
  Report Type: Report from Study
  Country: FR (occurrence: FR)
  Receive Date: 20130925
  Receipt Date: 20131021
  Transmission Date: 20140711
  Serious: Yes (Hospitalization)
  Sender: FDA-Public Use
  Company Number: FR-CELGENEUS-056-21880-13092045

PATIENT
  Age: 63 Year
  Sex: Male
  Weight: 32.46 kg

DRUGS (18)
  1. REVLIMID [Suspect]
     Indication: PLASMA CELL MYELOMA
     Dosage: 10 MILLIGRAM
     Route: 048
     Dates: start: 20120403
  2. REVLIMID [Suspect]
     Dosage: 10 MILLIGRAM
     Route: 048
     Dates: end: 20130905
  3. REVLIMID [Suspect]
     Route: 048
     Dates: end: 20121019
  4. BORTEZOMIB [Suspect]
     Indication: PLASMA CELL MYELOMA
     Route: 065
     Dates: start: 20120403, end: 20121019
  5. DEXAMETHASONE [Suspect]
     Indication: PLASMA CELL MYELOMA
     Route: 065
     Dates: start: 20120403, end: 20121019
  6. DEXAMETHASONE [Suspect]
     Indication: CONDITION AGGRAVATED
     Dosage: 2/3
     Route: 065
     Dates: start: 20130913
  7. CYCLOPHOSPHAMIDE [Concomitant]
     Indication: CONDITION AGGRAVATED
     Dosage: 2/3
     Route: 065
     Dates: start: 20130913
  8. ETOPOSIDE [Concomitant]
     Indication: CONDITION AGGRAVATED
     Dosage: 2/3
     Route: 065
     Dates: start: 20130913
  9. CISPLATIN [Concomitant]
     Indication: PRODUCT USED FOR UNKNOWN INDICATION
     Dosage: 2/3
     Route: 065
     Dates: start: 20130913
  10. OXYCONTIN [Concomitant]
     Indication: NEUROPATHY PERIPHERAL
     Route: 065
     Dates: start: 201306
  11. LYRICA [Concomitant]
     Indication: NEUROPATHY PERIPHERAL
     Route: 065
     Dates: start: 201306
  12. VERSATIS [Concomitant]
     Indication: NEUROPATHY PERIPHERAL
     Route: 065
     Dates: start: 201306
  13. LMWH [Concomitant]
     Indication: PRODUCT USED FOR UNKNOWN INDICATION
     Route: 065
  14. ZOMETA [Concomitant]
     Indication: PRODUCT USED FOR UNKNOWN INDICATION
     Route: 065
     Dates: start: 201304
  15. ZOMETA [Concomitant]
     Route: 065
  16. SKENAN/ACTISKENAN [Concomitant]
     Indication: BACK PAIN
     Route: 065
     Dates: start: 2011
  17. BACTRIM [Concomitant]
     Indication: PRODUCT USED FOR UNKNOWN INDICATION
     Route: 065
     Dates: end: 201301
  18. SPECIAFOLDINE [Concomitant]
     Indication: PRODUCT USED FOR UNKNOWN INDICATION
     Route: 065
     Dates: end: 201301

REACTIONS (3)
  - Hypercalcaemia [Recovered/Resolved]
  - Pancytopenia [Unknown]
  - Bone pain [Unknown]
